FAERS Safety Report 11440005 (Version 1)
Quarter: 2015Q3

REPORT INFORMATION
  Report Type: Spontaneous
  Country: US (occurrence: US)
  Receive Date: 20150901
  Receipt Date: 20150901
  Transmission Date: 20151125
  Serious: No
  Sender: FDA-Public Use
  Company Number: US-ROCHE-1085784

PATIENT
  Sex: Male

DRUGS (3)
  1. PEGASYS [Suspect]
     Active Substance: PEGINTERFERON ALFA-2A
     Indication: HEPATITIS C
  2. RIBASPHERE [Suspect]
     Active Substance: RIBAVIRIN
     Indication: HEPATITIS C
     Dosage: 400 MG IN MORNING AND 400 MG IN THE EVENING
     Route: 050
     Dates: start: 20120706
  3. PEGASYS [Suspect]
     Active Substance: PEGINTERFERON ALFA-2A
     Indication: HEPATITIS C
     Route: 050
     Dates: start: 20120706

REACTIONS (6)
  - Pyrexia [Unknown]
  - Pain [Unknown]
  - Feeling abnormal [Unknown]
  - Influenza like illness [Unknown]
  - Personality change [Unknown]
  - Chills [Unknown]
